FAERS Safety Report 8770447 (Version 1)
Quarter: 2012Q4

REPORT INFORMATION
  Report Type: 
  Country: US (occurrence: US)
  Receive Date: 20120906
  Receipt Date: 20120906
  Transmission Date: 20130627
  Serious: Yes (Other)
  Sender: FDA-Public Use
  Company Number: US-SANOFI-AVENTIS-2012SA062247

PATIENT
  Age: 72 Year
  Sex: Female

DRUGS (2)
  1. ALLEGRA D [Suspect]
     Indication: MULTIPLE ALLERGIES
     Dosage: 1 -24 hr-daily ; 1-12hr- 2 x^s- daily
     Route: 065
     Dates: start: 2002
  2. ALLEGRA D [Suspect]
     Indication: MULTIPLE ALLERGIES
     Route: 048
     Dates: start: 2002

REACTIONS (3)
  - Asthma [Unknown]
  - Chronic obstructive pulmonary disease [Unknown]
  - Clostridium difficile infection [Recovered/Resolved]
